FAERS Safety Report 8981502 (Version 1)
Quarter: 2012Q4

REPORT INFORMATION
  Report Type: 
  Country: US (occurrence: US)
  Receive Date: 20121221
  Receipt Date: 20121221
  Transmission Date: 20130627
  Serious: Yes (Hospitalization)
  Sender: FDA-Public Use
  Company Number: US-JNJFOC-20121206299

PATIENT
  Sex: Male
  Weight: 68.04 kg

DRUGS (4)
  1. SANDOZ FENTANYL TRANSDERMAL SYSTEM [Suspect]
     Indication: PAIN
     Route: 062
     Dates: start: 2002
  2. TAMSULOSIN [Concomitant]
     Indication: BLADDER DISORDER
     Route: 048
     Dates: start: 2011
  3. PROMETHAZINE [Concomitant]
     Indication: NAUSEA
     Route: 048
  4. HYDROCODONE [Concomitant]
     Indication: PAIN
     Dosage: 7.6-600 mg/15 c
     Route: 048
     Dates: start: 2002

REACTIONS (9)
  - Intestinal obstruction [Recovered/Resolved]
  - Post procedural complication [Recovered/Resolved]
  - Infection [Recovered/Resolved]
  - Large intestine perforation [Recovered/Resolved]
  - Lung disorder [Recovered/Resolved]
  - Therapeutic response decreased [Not Recovered/Not Resolved]
  - Anxiety [Not Recovered/Not Resolved]
  - Paraesthesia [Not Recovered/Not Resolved]
  - Tremor [Not Recovered/Not Resolved]
